FAERS Safety Report 25155157 (Version 3)
Quarter: 2025Q2

REPORT INFORMATION
  Report Type: Spontaneous
  Country: US (occurrence: US)
  Receive Date: 20250403
  Receipt Date: 20250410
  Transmission Date: 20250716
  Serious: Yes (Hospitalization)
  Sender: ROCHE
  Company Number: US-ROCHE-10000246873

PATIENT
  Age: 64 Year
  Sex: Female

DRUGS (6)
  1. RITUXIMAB [Suspect]
     Active Substance: RITUXIMAB
     Indication: Neuromyelitis optica spectrum disorder
     Dosage: 2 CYCLES
     Route: 042
  2. VALGANCICLOVIR [Suspect]
     Active Substance: VALGANCICLOVIR
     Indication: Cytomegalovirus colitis
     Route: 065
  3. ATORVASTATIN [Concomitant]
     Active Substance: ATORVASTATIN
     Indication: Hyperlipidaemia
  4. METFORMIN [Concomitant]
     Active Substance: METFORMIN HYDROCHLORIDE
     Indication: Type 2 diabetes mellitus
  5. GLIPIZIDE [Concomitant]
     Active Substance: GLIPIZIDE
  6. FILGRASTIM [Concomitant]
     Active Substance: FILGRASTIM
     Indication: Pancytopenia
     Route: 042

REACTIONS (3)
  - Septic shock [Recovered/Resolved]
  - Cytomegalovirus colitis [Recovered/Resolved]
  - Off label use [Unknown]
